FAERS Safety Report 9797944 (Version 1)
Quarter: 2014Q1

REPORT INFORMATION
  Report Type: Spontaneous
  Country: US (occurrence: None)
  Receive Date: 20140102
  Receipt Date: 20140102
  Transmission Date: 20141002
  Serious: Yes (Life-Threatening, Disabling)
  Sender: FDA-Public Use
  Company Number: None

PATIENT
  Age: 75 Year
  Sex: Male

DRUGS (2)
  1. ADDERALL [Suspect]
  2. TYLENOL EXTRA STRENTH + ADVIL PILL^S [Concomitant]

REACTIONS (1)
  - Pain [None]
